FAERS Safety Report 7471523-6 (Version None)
Quarter: 2011Q2

REPORT INFORMATION
  Report Type: 
  Country: None (occurrence: None)
  Receive Date: 20110511
  Receipt Date: 20110511
  Transmission Date: 20111010
  Serious: Yes (Hospitalization)
  Sender: FDA-Public Use
  Company Number: US-RANBAXY-2010US-33714

PATIENT

DRUGS (20)
  1. BACTRIM DS [Concomitant]
     Indication: ANTIBIOTIC PROPHYLAXIS
     Dosage: UNK, UNK
     Route: 065
  2. LOPRESSOR [Concomitant]
     Indication: HYPERTENSION
     Dosage: UNK, UNK
     Route: 065
  3. HEPARIN [Concomitant]
     Indication: THROMBOSIS PROPHYLAXIS
     Dosage: UNK, UNK
     Route: 065
  4. LASIX [Concomitant]
     Indication: ASCITES
     Dosage: UNK, UNK
     Route: 065
  5. NYSTATIN [Concomitant]
     Indication: ORAL CANDIDIASIS
     Dosage: UNK, UNK
     Route: 065
  6. SENOKOT [Concomitant]
     Indication: CONSTIPATION PROPHYLAXIS
     Dosage: UNK, UNK
     Route: 065
  7. GANCICLOVIR [Suspect]
     Indication: ANTIVIRAL PROPHYLAXIS
     Dosage: 500 MG CAPSULES, TID
     Route: 048
     Dates: start: 20070911, end: 20070928
  8. GANCICLOVIR [Suspect]
     Dosage: 2 500 MG CAPSULES, TID
     Route: 048
     Dates: start: 20071005
  9. ACYCLOVIR [Suspect]
     Dosage: 400 MG, BID
     Route: 048
     Dates: start: 20071005
  10. PROGRAF [Suspect]
     Indication: PROPHYLAXIS AGAINST TRANSPLANT REJECTION
     Dosage: UNK, UNK
     Route: 065
  11. AMLODIPINE BESYLATE [Concomitant]
     Indication: HYPERTENSION
     Dosage: UNK, UNK
     Route: 065
  12. ACYCLOVIR [Suspect]
     Indication: ANTIVIRAL PROPHYLAXIS
     Dosage: 400 MG, BID
     Route: 048
     Dates: start: 20070911, end: 20070928
  13. MAALOX [Concomitant]
     Indication: DYSPEPSIA
     Dosage: UNK, UNK
     Route: 065
  14. CELLCEPT [Concomitant]
     Indication: PROPHYLAXIS AGAINST TRANSPLANT REJECTION
     Dosage: UNK, UNK
     Route: 065
  15. MARIBAVIR (PLACEBO) [Suspect]
     Indication: ANTIVIRAL PROPHYLAXIS
     Dosage: 100 MG, BID
     Route: 048
     Dates: start: 20070911, end: 20070928
  16. MARIBAVIR (PLACEBO) [Suspect]
     Dosage: 100 MG, BID
     Route: 048
     Dates: start: 20071005
  17. LASIX [Concomitant]
     Indication: OEDEMA PERIPHERAL
  18. PREDNISONE [Concomitant]
     Indication: PROPHYLAXIS AGAINST TRANSPLANT REJECTION
     Dosage: UNK, UNK
     Route: 065
  19. SPIRONOLACTONE [Concomitant]
     Indication: ASCITES
     Dosage: UNK, UNK
     Route: 065
  20. CYCLOSPORINE [Concomitant]
     Indication: PROPHYLAXIS AGAINST TRANSPLANT REJECTION
     Dosage: UNK, UNK
     Route: 065

REACTIONS (4)
  - DELIRIUM [None]
  - TREMOR [None]
  - DIARRHOEA [None]
  - LEUKOCYTOSIS [None]
